FAERS Safety Report 16186916 (Version 1)
Quarter: 2019Q2

REPORT INFORMATION
  Report Type: Report from Study
  Country: US (occurrence: US)
  Receive Date: 20190411
  Receipt Date: 20190411
  Transmission Date: 20190711
  Serious: No
  Sender: FDA-Public Use
  Company Number: US-SHIRE-US201911856

PATIENT
  Sex: Male
  Weight: 93.42 kg

DRUGS (1)
  1. GATTEX [Suspect]
     Active Substance: TEDUGLUTIDE\WATER
     Indication: CROHN^S DISEASE
     Dosage: 0.4762 MILLILITER, 1X/DAY:QD
     Route: 050

REACTIONS (2)
  - Gastric mucosa erythema [Unknown]
  - Gastrointestinal neoplasm [Unknown]
